FAERS Safety Report 10280013 (Version 1)
Quarter: 2014Q3

REPORT INFORMATION
  Report Type: Spontaneous
  Country: US (occurrence: US)
  Receive Date: 20140707
  Receipt Date: 20140707
  Transmission Date: 20150326
  Serious: Yes (Other)
  Sender: FDA-Public Use
  Company Number: US-009507513-1407USA002487

PATIENT
  Age: 78 Year
  Sex: Female

DRUGS (3)
  1. JANUVIA [Suspect]
     Active Substance: SITAGLIPTIN PHOSPHATE
     Indication: TYPE 2 DIABETES MELLITUS
     Dosage: 100 MG/ ONCE DAILY
     Route: 048
     Dates: start: 2006
  2. SYNTHROID [Concomitant]
     Active Substance: LEVOTHYROXINE SODIUM
  3. CALCIUM (UNSPECIFIED) [Concomitant]
     Active Substance: CALCIUM

REACTIONS (2)
  - Papillary thyroid cancer [Unknown]
  - Product quality issue [Unknown]

NARRATIVE: CASE EVENT DATE: 20140502
